FAERS Safety Report 11952103 (Version 1)
Quarter: 2016Q1

REPORT INFORMATION
  Report Type: Spontaneous
  Country: US (occurrence: US)
  Receive Date: 20160126
  Receipt Date: 20160126
  Transmission Date: 20160526
  Serious: No
  Sender: FDA-Public Use
  Company Number: GB-009507513-1511USA004259

PATIENT
  Age: 33 Year

DRUGS (1)
  1. PROPECIA [Suspect]
     Active Substance: FINASTERIDE
     Dosage: UNK
     Route: 048
     Dates: start: 20080101, end: 20120101

REACTIONS (1)
  - Adverse event [Recovering/Resolving]
